FAERS Safety Report 5413898-5 (Version None)
Quarter: 2007Q3

REPORT INFORMATION
  Report Type: 
  Country: None (occurrence: None)
  Receive Date: 20070814
  Receipt Date: 20070731
  Transmission Date: 20080115
  Serious: Yes (Hospitalization)
  Sender: FDA-Public Use
  Company Number: US-ELI_LILLY_AND_COMPANY-US200705006332

PATIENT
  Age: 57 Year
  Sex: Female

DRUGS (3)
  1. FORTEO [Suspect]
     Indication: OSTEOPOROSIS
     Dosage: UNK, UNK
     Dates: start: 20070510, end: 20070610
  2. OXYCONTIN [Concomitant]
  3. PREDNISONE TAB [Concomitant]

REACTIONS (4)
  - DYSPNOEA [None]
  - LOWER LIMB FRACTURE [None]
  - NAUSEA [None]
  - THROMBOSIS [None]
